FAERS Safety Report 5205864-X (Version None)
Quarter: 2007Q1

REPORT INFORMATION
  Report Type: 
  Country: None (occurrence: None)
  Receive Date: 20070108
  Receipt Date: 20061226
  Transmission Date: 20070707
  Serious: Yes (Other)
  Sender: FDA-Public Use
  Company Number: HQWYE092102JAN07

PATIENT
  Sex: Female

DRUGS (1)
  1. CORDARONE [Suspect]

REACTIONS (3)
  - COLITIS [None]
  - HYPERTHYROIDISM [None]
  - HYPOTHYROIDISM [None]
